FAERS Safety Report 5311644-7 (Version None)
Quarter: 2007Q2

REPORT INFORMATION
  Report Type: 
  Country: None (occurrence: None)
  Receive Date: 20070430
  Receipt Date: 20061115
  Transmission Date: 20071010
  Serious: No
  Sender: FDA-Public Use
  Company Number: 2006UW24379

PATIENT
  Age: 42 Year
  Sex: Female

DRUGS (7)
  1. ZOMIG [Suspect]
     Indication: MIGRAINE
     Route: 048
  2. INDERAL [Concomitant]
  3. LYRICA [Concomitant]
  4. PROPRANOLOL [Concomitant]
  5. PROZAC [Concomitant]
  6. FUROSEMIDE [Concomitant]
  7. REQUIP [Concomitant]

REACTIONS (1)
  - FOOD CRAVING [None]
